FAERS Safety Report 9631547 (Version 3)
Quarter: 2013Q4

REPORT INFORMATION
  Report Type: Spontaneous
  Country: US (occurrence: US)
  Receive Date: 20131018
  Receipt Date: 20131223
  Transmission Date: 20140711
  Serious: Yes (Other)
  Sender: FDA-Public Use
  Company Number: US-PFIZER INC-2013297325

PATIENT
  Age: 52 Year
  Sex: Female
  Weight: 75 kg

DRUGS (9)
  1. LIPITOR [Suspect]
     Indication: LOW DENSITY LIPOPROTEIN INCREASED
     Dosage: 40 MG, 1X/DAY (EVERY DAY)
     Route: 048
     Dates: start: 20110222, end: 201305
  2. LIPITOR [Suspect]
     Indication: CARDIOVASCULAR EVENT PROPHYLAXIS
  3. LIPITOR [Suspect]
     Indication: TYPE V HYPERLIPIDAEMIA
  4. VITAMIN C [Concomitant]
     Dosage: 500 MG, UNK
     Dates: start: 20100706
  5. VITAMIN D [Concomitant]
     Dosage: 1000 IU, UNK
     Dates: start: 20100706
  6. CLARITIN [Concomitant]
     Dosage: 10 MG, 1X/DAY
     Route: 048
     Dates: start: 20101007
  7. OMEPRAZOLE [Concomitant]
     Indication: GASTROOESOPHAGEAL REFLUX DISEASE
     Dosage: 20 MG, 1X/DAY
     Route: 048
     Dates: start: 20101215
  8. LISINOPRIL W/HYDROCHLOROTHIAZIDE [Concomitant]
     Indication: HYPERTENSION
     Dosage: 20-12.5 MG
     Dates: start: 20110218
  9. FLEXERIL [Concomitant]
     Indication: MUSCLE SPASMS
     Dosage: 10 MG, 1X/DAY EVERY NIGHT AT BED TIME
     Route: 048
     Dates: start: 20110502

REACTIONS (1)
  - Type 2 diabetes mellitus [Unknown]
